FAERS Safety Report 13532406 (Version 2)
Quarter: 2017Q3

REPORT INFORMATION
  Report Type: Spontaneous
  Country: US (occurrence: US)
  Receive Date: 20170510
  Receipt Date: 20170811
  Transmission Date: 20171127
  Serious: Yes (Hospitalization)
  Sender: FDA-Public Use
  Company Number: US-PFIZER INC-2017201517

PATIENT
  Age: 63 Year
  Sex: Female
  Weight: 96.16 kg

DRUGS (10)
  1. MOBIC [Concomitant]
     Active Substance: MELOXICAM
     Dosage: UNK
  2. AMLODIPINE [Concomitant]
     Active Substance: AMLODIPINE BESYLATE
     Dosage: 5 MG, UNK [X1]
  3. GABAPENTIN. [Suspect]
     Active Substance: GABAPENTIN
     Indication: OSTEOARTHRITIS
  4. SINGULAIR [Concomitant]
     Active Substance: MONTELUKAST SODIUM
     Indication: HYPERSENSITIVITY
     Dosage: 10 MG, 1X/DAY
     Route: 048
     Dates: start: 20150101
  5. CRESTOR [Concomitant]
     Active Substance: ROSUVASTATIN CALCIUM
     Dosage: 10 MG, UNK [X1]
  6. CARVEDILOL. [Concomitant]
     Active Substance: CARVEDILOL
     Dosage: 25 MG, UNK
  7. METFORMIN [Concomitant]
     Active Substance: METFORMIN HYDROCHLORIDE
     Dosage: 500 MG, UNK [X2]
  8. GABAPENTIN. [Suspect]
     Active Substance: GABAPENTIN
     Indication: NEURALGIA
     Dosage: 300 MG, 2X/DAY
     Route: 048
     Dates: start: 20170303, end: 20170417
  9. GABAPENTIN. [Suspect]
     Active Substance: GABAPENTIN
     Indication: FIBROMYALGIA
     Dosage: 10 MG, 2X/DAY
     Route: 048
     Dates: start: 20170201
  10. CYCLOBENZAPRINE. [Concomitant]
     Active Substance: CYCLOBENZAPRINE
     Dosage: UNK [X1]

REACTIONS (11)
  - Myalgia [Unknown]
  - Blister [Recovered/Resolved]
  - Drug ineffective for unapproved indication [Recovered/Resolved]
  - Tenderness [Unknown]
  - Finger deformity [Recovered/Resolved]
  - Arthralgia [Unknown]
  - Fatigue [Unknown]
  - Joint swelling [Recovered/Resolved]
  - Pain [Recovered/Resolved]
  - Peripheral swelling [Recovered/Resolved]
  - Foot deformity [Recovered/Resolved]

NARRATIVE: CASE EVENT DATE: 2017
